FAERS Safety Report 22093363 (Version 1)
Quarter: 2023Q1

REPORT INFORMATION
  Report Type: Spontaneous
  Country: US (occurrence: None)
  Receive Date: 20230314
  Receipt Date: 20230314
  Transmission Date: 20230418
  Serious: Yes (Hospitalization)
  Sender: FDA-Public Use
  Company Number: None

PATIENT
  Age: 43 Year
  Sex: Female
  Weight: 73.03 kg

DRUGS (34)
  1. JADENU [Suspect]
     Active Substance: DEFERASIROX
     Indication: Thalassaemia sickle cell
     Dosage: FREQUENCY : DAILY;?
     Route: 048
     Dates: start: 202303
  2. ADVIL [Concomitant]
  3. ALPRAZOLAM [Concomitant]
  4. AMBIEN [Concomitant]
  5. BENADRYL [Concomitant]
  6. CARAFATE [Concomitant]
  7. CIPRO [Concomitant]
     Active Substance: CIPROFLOXACIN HYDROCHLORIDE
  8. CYPROHEPTADINE [Concomitant]
  9. DEXAMETHASONE [Concomitant]
  10. DULOXETINE [Concomitant]
  11. FENTANYL [Concomitant]
  12. FLONASE [Concomitant]
  13. GABAPENTIN [Concomitant]
  14. LEVAQUIN [Concomitant]
  15. LOVENOX [Concomitant]
  16. LYRICA [Concomitant]
  17. LYSINE [Concomitant]
  18. MAGNESIUM [Concomitant]
  19. MEDROL [Concomitant]
  20. MIRALAX [Concomitant]
  21. NARCAN [Concomitant]
  22. OMEPRAZOLE [Concomitant]
  23. OXYCODONE [Concomitant]
  24. PAXIL [Concomitant]
  25. POTASSIUM CHLORIDE ER [Concomitant]
  26. PREGABALIN [Concomitant]
  27. PROBIOTIC [Concomitant]
  28. PROMETHAZINE [Concomitant]
  29. PROTONIX [Concomitant]
  30. TRAMADOL [Concomitant]
  31. VITAMIN C [Concomitant]
  32. VITAMIN D2 [Concomitant]
  33. VITAMIN D3 [Concomitant]
  34. ZITHROMAX [Concomitant]
     Active Substance: AZITHROMYCIN DIHYDRATE

REACTIONS (1)
  - Surgery [None]
